FAERS Safety Report 18213638 (Version 1)
Quarter: 2020Q3

REPORT INFORMATION
  Report Type: Spontaneous
  Country: US (occurrence: US)
  Receive Date: 20200831
  Receipt Date: 20200831
  Transmission Date: 20201103
  Serious: No
  Sender: FDA-Public Use
  Company Number: None

PATIENT
  Age: 48 Year
  Sex: Male
  Weight: 118 kg

DRUGS (2)
  1. BUSPIRONE (BUSPIRONE HCL 10MG TAB) [Suspect]
     Active Substance: BUSPIRONE HYDROCHLORIDE
     Indication: PANIC ATTACK
  2. BUSPIRONE (BUSPIRONE HCL 10MG TAB) [Suspect]
     Active Substance: BUSPIRONE HYDROCHLORIDE
     Indication: ANXIETY
     Route: 048
     Dates: start: 20200625, end: 20200804

REACTIONS (5)
  - Nausea [None]
  - Syncope [None]
  - Vomiting [None]
  - Vision blurred [None]
  - Dizziness [None]

NARRATIVE: CASE EVENT DATE: 20200803
